FAERS Safety Report 10486858 (Version 1)
Quarter: 2014Q4

REPORT INFORMATION
  Report Type: Spontaneous
  Country: US (occurrence: US)
  Receive Date: 20141001
  Receipt Date: 20141001
  Transmission Date: 20150528
  Serious: No
  Sender: FDA-Public Use
  Company Number: US-BAYER-2014-145453

PATIENT
  Sex: Female

DRUGS (1)
  1. ALEVE [Suspect]
     Active Substance: NAPROXEN SODIUM
     Indication: MUSCLE STRAIN
     Dosage: 2 DF, ONCE
     Route: 048
     Dates: start: 20140924, end: 20140924

REACTIONS (2)
  - Rash [Not Recovered/Not Resolved]
  - Intentional product misuse [None]

NARRATIVE: CASE EVENT DATE: 20140924
